FAERS Safety Report 5595124-X (Version None)
Quarter: 2008Q1

REPORT INFORMATION
  Report Type: 
  Country: None (occurrence: None)
  Receive Date: 20080117
  Receipt Date: 20071018
  Transmission Date: 20080703
  Serious: Yes (Death, Hospitalization)
  Sender: FDA-Public Use
  Company Number: LB-SANOFI-SYNTHELABO-A01200711779

PATIENT
  Age: 83 Year
  Sex: Female

DRUGS (8)
  1. CORDARONE [Concomitant]
     Indication: ARRHYTHMIA
     Route: 048
     Dates: start: 20070501
  2. LESCOL [Concomitant]
     Indication: DYSLIPIDAEMIA
     Route: 048
     Dates: start: 20070501
  3. ALDACTONE [Concomitant]
     Indication: CARDIAC FAILURE CONGESTIVE
     Route: 048
     Dates: start: 20070501
  4. LASIX [Concomitant]
     Indication: CARDIAC FAILURE CONGESTIVE
     Route: 048
     Dates: start: 20070501
  5. ASPICOT [Concomitant]
     Indication: THROMBOSIS PROPHYLAXIS
     Route: 048
     Dates: start: 20070501
  6. TRITACE [Concomitant]
     Indication: CARDIAC DISORDER
     Route: 048
     Dates: start: 20070501
  7. NITRODERM [Concomitant]
     Indication: HYPERTENSION
     Route: 062
     Dates: start: 20070501
  8. PLAVIX [Suspect]
     Indication: MYOCARDIAL INFARCTION
     Route: 048
     Dates: start: 20070520

REACTIONS (1)
  - ACUTE RESPIRATORY DISTRESS SYNDROME [None]
